FAERS Safety Report 17821348 (Version 4)
Quarter: 2020Q2

REPORT INFORMATION
  Report Type: Report from Study
  Country: US (occurrence: US)
  Receive Date: 20200525
  Receipt Date: 20200630
  Transmission Date: 20200714
  Serious: Yes (Life-Threatening, Hospitalization)
  Sender: FDA-Public Use
  Company Number: US-SA-2020SA117440

PATIENT

DRUGS (17)
  1. AZITHROMYCIN ANHYDROUS. [Concomitant]
     Active Substance: AZITHROMYCIN ANHYDROUS
     Indication: COVID-19 PNEUMONIA
     Dosage: 500 MG, QD
     Route: 042
     Dates: start: 20200421, end: 20200421
  2. CEFTRIAXONE. [Concomitant]
     Active Substance: CEFTRIAXONE
     Indication: COVID-19 PNEUMONIA
     Dosage: 1000 MG, QD
     Route: 042
     Dates: start: 20200421, end: 20200422
  3. PROMETHAZINE - CODEINE [CODEINE PHOSPHATE;PROMETHAZINE HYDROCHLORIDE] [Concomitant]
     Indication: COUGH
     Dosage: 6.25-10MG, QID
     Route: 048
     Dates: start: 20200508, end: 20200510
  4. TOCILIZUMAB. [Concomitant]
     Active Substance: TOCILIZUMAB
     Indication: COVID-19
     Dosage: 800 MG, 1X
     Route: 042
     Dates: start: 20200512, end: 20200512
  5. VANCOMYCIN [Concomitant]
     Active Substance: VANCOMYCIN
     Dosage: 1250 MG, BID
     Route: 042
     Dates: start: 20200524, end: 20200528
  6. MEROPENEM. [Concomitant]
     Active Substance: MEROPENEM
     Indication: COVID-19
     Dosage: 500 MG, Q6H
     Route: 042
     Dates: start: 20200511
  7. VANCOMYCIN [Concomitant]
     Active Substance: VANCOMYCIN
     Indication: BACTERAEMIA
     Dosage: 1000 MG, Q12H
     Route: 042
     Dates: start: 20200510, end: 20200511
  8. ACETAMINOFEN [Concomitant]
     Active Substance: ACETAMINOPHEN
     Indication: PAIN
  9. VANCOMYCIN [Concomitant]
     Active Substance: VANCOMYCIN
     Indication: COVID-19 PNEUMONIA
     Dosage: 1000 MG, Q8H
     Route: 042
     Dates: start: 20200514
  10. VANCOMYCIN [Concomitant]
     Active Substance: VANCOMYCIN
     Dosage: 1500 MG, BID, DOSE RAISED
     Route: 042
     Dates: start: 20200515, end: 20200516
  11. METHYLPREDNISOLONE. [Concomitant]
     Active Substance: METHYLPREDNISOLONE
     Indication: INFLAMMATION
     Dosage: 50 MG, Q6H
     Route: 042
     Dates: start: 20200423, end: 20200428
  12. VANCOMYCIN [Concomitant]
     Active Substance: VANCOMYCIN
     Dosage: 1250 MG, Q12H
     Route: 042
     Dates: start: 20200511, end: 20200513
  13. VANCOMYCIN [Concomitant]
     Active Substance: VANCOMYCIN
     Dosage: 1250 MG, BID, DOSE RAISED
     Route: 042
     Dates: start: 20200514, end: 20200515
  14. SARILUMAB [Suspect]
     Active Substance: SARILUMAB
     Indication: COVID-19
     Dosage: 1X, REGN MAB1 200 MG
     Route: 042
     Dates: start: 20200423, end: 20200423
  15. SARILUMAB [Suspect]
     Active Substance: SARILUMAB
     Dosage: 1X, REGN MAB1 200 MG
     Route: 042
     Dates: start: 20200424, end: 20200424
  16. ACETAMINOFEN [Concomitant]
     Active Substance: ACETAMINOPHEN
     Indication: PYREXIA
     Dosage: 650 MG, PRN
     Route: 048
     Dates: start: 20200423
  17. MEROPENEM. [Concomitant]
     Active Substance: MEROPENEM
     Dosage: 100 MG, 1X
     Dates: start: 20200510, end: 20200510

REACTIONS (10)
  - Aspartate aminotransferase [Unknown]
  - Candida infection [Unknown]
  - Alanine aminotransferase increased [Recovered/Resolved]
  - Pulmonary embolism [Unknown]
  - Supraventricular tachycardia [Recovered/Resolved]
  - Pneumonia bacterial [Unknown]
  - Alanine aminotransferase increased [Recovered/Resolved]
  - Staphylococcal infection [Recovered/Resolved]
  - Cardiac ventricular thrombosis [Unknown]
  - Alanine aminotransferase increased [Not Recovered/Not Resolved]

NARRATIVE: CASE EVENT DATE: 20200501
